FAERS Safety Report 8763399 (Version 3)
Quarter: 2013Q1

REPORT INFORMATION
  Report Type: Spontaneous
  Country: US (occurrence: US)
  Receive Date: 20120831
  Receipt Date: 20130220
  Transmission Date: 20140127
  Serious: No
  Sender: FDA-Public Use
  Company Number: US-ELI_LILLY_AND_COMPANY-US200912006363

PATIENT
  Sex: Female
  Weight: 80.3 kg

DRUGS (2)
  1. HUMATROPE [Suspect]
     Dosage: 0.8 MG, QD
     Route: 058
  2. HUMATROPE [Suspect]
     Dosage: 0.5 MG, QD
     Route: 058

REACTIONS (2)
  - Influenza [Recovered/Resolved]
  - Nasopharyngitis [Recovered/Resolved]
